FAERS Safety Report 11242736 (Version 2)
Quarter: 2015Q3

REPORT INFORMATION
  Report Type: Report from Study
  Country: DE (occurrence: DE)
  Receive Date: 20150707
  Receipt Date: 20150819
  Transmission Date: 20151125
  Serious: Yes (Death, Hospitalization, Other)
  Sender: FDA-Public Use
  Company Number: DE-ROCHE-1602723

PATIENT
  Age: 68 Year
  Sex: Female
  Weight: 61 kg

DRUGS (15)
  1. BLINDED IBRUTINIB [Suspect]
     Active Substance: IBRUTINIB
     Indication: CHRONIC LYMPHOCYTIC LEUKAEMIA
     Dosage: 11 CYCLES, HELIOS STUDY
     Route: 048
     Dates: start: 20131219, end: 20141027
  2. BENDAMUSTINE [Suspect]
     Active Substance: BENDAMUSTINE
     Dosage: CYCLES 2-6, CLL10 STUDY
     Route: 042
     Dates: start: 20090811, end: 20091202
  3. OLMESARTAN [Concomitant]
     Active Substance: OLMESARTAN
     Indication: HYPERTENSION
     Route: 048
     Dates: start: 20140206, end: 20150122
  4. RITUXIMAB [Suspect]
     Active Substance: RITUXIMAB
     Indication: CHRONIC LYMPHOCYTIC LEUKAEMIA
     Dosage: 1ST AND 2ND OF 6 CYCLES, HELIOS STUDY
     Route: 042
     Dates: start: 20131217, end: 20140114
  5. ONDANSETRON [Concomitant]
     Active Substance: ONDANSETRON
     Route: 065
  6. SMOFKABIVEN [Concomitant]
     Active Substance: UNSPECIFIED INGREDIENT
     Dosage: IN 24H
     Route: 042
  7. DEXAMETHASON [Concomitant]
     Active Substance: DEXAMETHASONE
     Route: 065
     Dates: start: 20150104, end: 20150107
  8. RITUXIMAB [Suspect]
     Active Substance: RITUXIMAB
     Dosage: CYCLES 2-6, CLL10 STUDY
     Route: 042
     Dates: start: 20090811, end: 20091201
  9. RITUXIMAB [Suspect]
     Active Substance: RITUXIMAB
     Route: 042
     Dates: start: 20140220, end: 20140521
  10. AMLODIPIN [Concomitant]
     Active Substance: AMLODIPINE BESYLATE
     Indication: HYPERTENSION
     Route: 048
     Dates: start: 20140206, end: 20150122
  11. BENDAMUSTINE [Suspect]
     Active Substance: BENDAMUSTINE
     Indication: CHRONIC LYMPHOCYTIC LEUKAEMIA
     Route: 042
     Dates: start: 20131219, end: 20140522
  12. BENDAMUSTINE [Suspect]
     Active Substance: BENDAMUSTINE
     Dosage: 1ST F 6 CYCLE, CLL10 STUDY
     Route: 042
     Dates: start: 20090709, end: 20090710
  13. SPIRONOLACTON [Concomitant]
     Active Substance: SPIRONOLACTONE
     Indication: HYPERTENSION
     Route: 048
     Dates: start: 20140403, end: 20150122
  14. RITUXIMAB [Suspect]
     Active Substance: RITUXIMAB
     Dosage: 1ST OF 6 CYCLES, CLL10 STUDY
     Route: 042
     Dates: start: 20090707, end: 20090708
  15. PANTOZOL [Concomitant]
     Active Substance: PANTOPRAZOLE SODIUM
     Route: 065

REACTIONS (7)
  - Pneumonia [Recovered/Resolved]
  - Sepsis [Recovered/Resolved]
  - Cystitis haemorrhagic [Recovered/Resolved]
  - Pseudomembranous colitis [Not Recovered/Not Resolved]
  - Acute kidney injury [Not Recovered/Not Resolved]
  - Infectious pleural effusion [Recovered/Resolved]
  - Progressive multifocal leukoencephalopathy [Fatal]

NARRATIVE: CASE EVENT DATE: 201106
